FAERS Safety Report 8723230 (Version 7)
Quarter: 2012Q4

REPORT INFORMATION
  Report Type: 
  Country: US (occurrence: US)
  Receive Date: 20120814
  Receipt Date: 20121224
  Transmission Date: 20130627
  Serious: No
  Sender: FDA-Public Use
  Company Number: US-ASTRAZENECA-2012SE56168

PATIENT
  Age: 60 Year
  Sex: Female

DRUGS (1)
  1. RHINOCORT AQUA [Suspect]
     Indication: MULTIPLE ALLERGIES
     Dosage: 1 SPRAY EVERY OTHER DAY
     Route: 045

REACTIONS (15)
  - Adverse event [Unknown]
  - Dyspnoea [Unknown]
  - Cough [Unknown]
  - Restlessness [Unknown]
  - Increased upper airway secretion [Unknown]
  - Sleep disorder due to a general medical condition [Unknown]
  - Dysphonia [Unknown]
  - Nausea [Unknown]
  - Paranasal sinus hypersecretion [Unknown]
  - Malaise [Unknown]
  - Activities of daily living impaired [Unknown]
  - Epistaxis [Unknown]
  - Expired drug administered [Unknown]
  - Intentional drug misuse [Unknown]
  - Drug dose omission [Unknown]
